FAERS Safety Report 10068456 (Version 2)
Quarter: 2014Q2

REPORT INFORMATION
  Report Type: Spontaneous
  Country: US (occurrence: US)
  Receive Date: 20140409
  Receipt Date: 20140620
  Transmission Date: 20141212
  Serious: Yes (Death, Other)
  Sender: FDA-Public Use
  Company Number: US-ABBVIE-14P-163-1220317-00

PATIENT
  Age: 56 Year
  Sex: Female
  Weight: 59.02 kg

DRUGS (4)
  1. HUMIRA [Suspect]
     Indication: CROHN^S DISEASE
     Route: 058
     Dates: start: 20120809, end: 2013
  2. HUMIRA [Suspect]
     Route: 058
     Dates: start: 20140220
  3. PREDNISONE [Concomitant]
     Indication: CROHN^S DISEASE
     Dosage: VARYING
  4. MERCAPTOPURINE [Concomitant]
     Indication: PRODUCT USED FOR UNKNOWN INDICATION

REACTIONS (5)
  - Death [Fatal]
  - Small cell lung cancer metastatic [Unknown]
  - Diarrhoea [Unknown]
  - Abdominal pain [Unknown]
  - Upper respiratory tract infection [Unknown]
